FAERS Safety Report 9553044 (Version 2)
Quarter: 2013Q4

REPORT INFORMATION
  Report Type: Spontaneous
  Country: DK (occurrence: US)
  Receive Date: 20130925
  Receipt Date: 20131003
  Transmission Date: 20140711
  Serious: Yes (Hospitalization, Other)
  Sender: FDA-Public Use
  Company Number: US-FRI-1000049162

PATIENT
  Age: 14 Year
  Sex: Female

DRUGS (3)
  1. CITALOPRAM [Suspect]
     Dosage: OVERDOSE: UNKNOWN AMOUNT
  2. BUPROPION [Suspect]
     Dosage: OVERDOSE: UP TO 9 G
  3. HYDROXYZINE [Suspect]
     Dosage: OVERDOSE: UNKNOWN AMOUNT

REACTIONS (6)
  - Convulsion [Recovered/Resolved]
  - Electrocardiogram QT prolonged [Recovered/Resolved]
  - Blood potassium decreased [Recovered/Resolved]
  - Cardiogenic shock [Recovered/Resolved]
  - Overdose [Recovered/Resolved]
  - Off label use [Unknown]
